FAERS Safety Report 6922093-X (Version None)
Quarter: 2010Q3

REPORT INFORMATION
  Report Type: 
  Country: None (occurrence: None)
  Receive Date: 20100812
  Receipt Date: 20100802
  Transmission Date: 20110219
  Serious: Yes (Other)
  Sender: FDA-Public Use
  Company Number: US-BAYER-201017193NA

PATIENT
  Sex: Female
  Weight: 127 kg

DRUGS (7)
  1. BETASERON [Suspect]
     Indication: MULTIPLE SCLEROSIS
     Dosage: EVERY THIRD DAY
     Route: 058
     Dates: start: 19880101, end: 20030101
  2. BETASERON [Suspect]
     Dosage: EVERY THIRD DAY
     Route: 058
  3. TYSABRI [Concomitant]
     Route: 042
  4. MOBIC [Concomitant]
     Dosage: TOTAL DAILY DOSE: 15 MG
  5. METFORMIN HCL [Concomitant]
     Dosage: TOTAL DAILY DOSE: 1000 MG
  6. MORPHINE [Concomitant]
     Dosage: TOTAL DAILY DOSE: 40 MG
  7. TEMAZEPAM [Concomitant]
     Dosage: TOTAL DAILY DOSE: 30 MG

REACTIONS (3)
  - DEPRESSION [None]
  - MEMORY IMPAIRMENT [None]
  - SUICIDAL IDEATION [None]
